APPROVED DRUG PRODUCT: PAZOPANIB HYDROCHLORIDE
Active Ingredient: PAZOPANIB HYDROCHLORIDE
Strength: EQ 400MG BASE
Dosage Form/Route: TABLET;ORAL
Application: A219922 | Product #001
Applicant: TORRENT PHARMACEUTICALS LTD
Approved: Sep 4, 2025 | RLD: No | RS: No | Type: RX

EXCLUSIVITY:
Code: CGT | Date: May 6, 2026